FAERS Safety Report 10156745 (Version 1)
Quarter: 2014Q2

REPORT INFORMATION
  Report Type: Spontaneous
  Country: DE (occurrence: None)
  Receive Date: 20140505
  Receipt Date: 20140505
  Transmission Date: 20141212
  Serious: Yes (Life-Threatening)
  Sender: FDA-Public Use
  Company Number: 2014P1003603

PATIENT
  Age: 62 Year
  Sex: Female

DRUGS (5)
  1. OLANZAPINE [Suspect]
     Indication: BIPOLAR DISORDER
  2. AMISULPRIDE [Suspect]
     Indication: BIPOLAR DISORDER
  3. BIPREIDEN [Concomitant]
  4. BENPERIDOL [Concomitant]
  5. LITHIUM CARBONATE [Concomitant]

REACTIONS (5)
  - Torsade de pointes [None]
  - Tachycardia [None]
  - Ventricular fibrillation [None]
  - Ventricular arrhythmia [None]
  - Stress cardiomyopathy [None]
